APPROVED DRUG PRODUCT: BUTABARBITAL SODIUM
Active Ingredient: BUTABARBITAL SODIUM
Strength: 97.2MG
Dosage Form/Route: TABLET;ORAL
Application: A083896 | Product #001
Applicant: SOLVAY PHARMACEUTICALS
Approved: Approved Prior to Jan 1, 1982 | RLD: No | RS: No | Type: DISCN